FAERS Safety Report 6220874-1 (Version None)
Quarter: 2009Q2

REPORT INFORMATION
  Report Type: 
  Country: None (occurrence: None)
  Receive Date: 20090603
  Receipt Date: 20090519
  Transmission Date: 20091009
  Serious: Yes (Other)
  Sender: FDA-Public Use
  Company Number: 2009IN004515

PATIENT
  Age: 40 Year
  Sex: Female

DRUGS (1)
  1. PALONOSETRON HCL BRAND UNKNOWN (PALONOSETRON HYDROCHLORIDE) INJECTION, [Suspect]
     Indication: PROPHYLAXIS OF NAUSEA AND VOMITING
     Dosage: 0.25 MG SINGLE, INTRAVENOUS
     Route: 042
     Dates: start: 20080101, end: 20080101

REACTIONS (1)
  - ANAPHYLACTIC SHOCK [None]
